FAERS Safety Report 5114898-5 (Version None)
Quarter: 2006Q3

REPORT INFORMATION
  Report Type: 
  Country: None (occurrence: None)
  Receive Date: 20060922
  Receipt Date: 20060912
  Transmission Date: 20061208
  Serious: Yes (Life-Threatening, Hospitalization)
  Sender: FDA-Public Use
  Company Number: E2090-00082-SPO-US

PATIENT
  Age: 70 Year
  Sex: Male
  Weight: 86 kg

DRUGS (1)
  1. ZONEGRAN [Suspect]
     Indication: NEUROPATHY
     Dosage: 100 MG
     Dates: start: 20060901, end: 20060901

REACTIONS (7)
  - DYSPNOEA [None]
  - GASTROINTESTINAL DISORDER [None]
  - HYPOTENSION [None]
  - LEUKOPENIA [None]
  - NAUSEA [None]
  - PULMONARY OEDEMA [None]
  - VOMITING [None]
